FAERS Safety Report 7535720-3 (Version None)
Quarter: 2011Q2

REPORT INFORMATION
  Report Type: 
  Country: None (occurrence: None)
  Receive Date: 20110602
  Receipt Date: 20110524
  Transmission Date: 20111010
  Serious: Yes (Other)
  Sender: FDA-Public Use
  Company Number: 2011002153

PATIENT
  Age: 63 Year
  Sex: Male

DRUGS (6)
  1. LORAZEPAM [Concomitant]
  2. TARCEVA [Suspect]
     Indication: METASTASES TO CENTRAL NERVOUS SYSTEM
     Dosage: 150 MG, UID/QD, ORAL, 100 MG, UID/QD, ORAL
     Route: 048
     Dates: start: 20110325, end: 20110428
  3. TARCEVA [Suspect]
     Indication: NON-SMALL CELL LUNG CANCER
     Dosage: 150 MG, UID/QD, ORAL, 100 MG, UID/QD, ORAL
     Route: 048
     Dates: start: 20110325, end: 20110428
  4. TARCEVA [Suspect]
     Indication: METASTASES TO CENTRAL NERVOUS SYSTEM
     Dosage: 150 MG, UID/QD, ORAL, 100 MG, UID/QD, ORAL
     Route: 048
     Dates: start: 20110520
  5. TARCEVA [Suspect]
     Indication: NON-SMALL CELL LUNG CANCER
     Dosage: 150 MG, UID/QD, ORAL, 100 MG, UID/QD, ORAL
     Route: 048
     Dates: start: 20110520
  6. OMEPRAZOLE (OMEPRAZOLE SODIUM) [Concomitant]

REACTIONS (11)
  - NAUSEA [None]
  - CHEST DISCOMFORT [None]
  - SINUS CONGESTION [None]
  - COUGH [None]
  - TINNITUS [None]
  - RASH MACULO-PAPULAR [None]
  - VOMITING [None]
  - DEAFNESS [None]
  - UPPER-AIRWAY COUGH SYNDROME [None]
  - VERTIGO [None]
  - DYSPEPSIA [None]
